FAERS Safety Report 4744297-7 (Version None)
Quarter: 2005Q3

REPORT INFORMATION
  Report Type: 
  Country: None (occurrence: None)
  Receive Date: 20050809
  Receipt Date: 20050726
  Transmission Date: 20060218
  Serious: Yes (Other)
  Sender: FDA-Public Use
  Company Number: 2005S1000229

PATIENT
  Age: 39 Year
  Sex: Male

DRUGS (1)
  1. ACITRETIN                          (ACITRETIN) [Suspect]
     Indication: PSORIASIS

REACTIONS (1)
  - HYPERTHYROIDISM [None]
